FAERS Safety Report 12581719 (Version 1)
Quarter: 2016Q3

REPORT INFORMATION
  Report Type: Spontaneous
  Country: US (occurrence: US)
  Receive Date: 20160722
  Receipt Date: 20160722
  Transmission Date: 20161109
  Serious: Yes (Hospitalization)
  Sender: FDA-Public Use
  Company Number: US-STRIDES ARCOLAB LIMITED-2015SP002072

PATIENT

DRUGS (2)
  1. MYCOPHENOLATE MOFETIL. [Suspect]
     Active Substance: MYCOPHENOLATE MOFETIL
     Indication: PANCREAS ISLET CELL TRANSPLANT
     Dosage: UNK
  2. SIROLIMUS. [Suspect]
     Active Substance: SIROLIMUS
     Indication: PANCREAS ISLET CELL TRANSPLANT
     Dosage: UNK

REACTIONS (1)
  - Cellulitis [Unknown]
